FAERS Safety Report 9915747 (Version 2)
Quarter: 2014Q1

REPORT INFORMATION
  Report Type: Report from Study
  Country: US (occurrence: US)
  Receive Date: 20140221
  Receipt Date: 20140221
  Transmission Date: 20141002
  Serious: Yes (Hospitalization)
  Sender: FDA-Public Use
  Company Number: US-CELGENEUS-163-21880-14014921

PATIENT
  Age: 34 Year
  Sex: Female
  Weight: 71.7 kg

DRUGS (3)
  1. REVLIMID [Suspect]
     Indication: HODGKIN^S DISEASE
     Dosage: 25 MILLIGRAM
     Route: 048
     Dates: start: 201311
  2. REVLIMID [Suspect]
     Dosage: 25 MILLIGRAM
     Route: 048
     Dates: start: 20131202
  3. FENTANYL [Concomitant]
     Indication: PAIN
     Route: 065

REACTIONS (4)
  - Erythema nodosum [Recovered/Resolved]
  - Febrile neutropenia [Recovered/Resolved]
  - Fatigue [Not Recovered/Not Resolved]
  - Blood count abnormal [Unknown]
